FAERS Safety Report 4451673-9 (Version None)
Quarter: 2004Q3

REPORT INFORMATION
  Report Type: 
  Country: None (occurrence: None)
  Receive Date: 20040915
  Receipt Date: 20030121
  Transmission Date: 20050211
  Serious: Yes (Death)
  Sender: FDA-Public Use
  Company Number: 2004232398CA

PATIENT
  Age: 67 Year
  Sex: Male

DRUGS (5)
  1. ZYVOX [Suspect]
     Indication: PNEUMONIA STAPHYLOCOCCAL
     Dosage: 600 MG, BID, IV
     Route: 042
     Dates: start: 20011122
  2. CEFTAZIDIME SODIUM [Concomitant]
  3. TOBRAMYCIN [Concomitant]
  4. CIPROFLOXACIN [Concomitant]
  5. MEROPENEM (MEROPENEM) [Concomitant]

REACTIONS (1)
  - ASPIRATION [None]
